FAERS Safety Report 7670281-X (Version None)
Quarter: 2011Q3

REPORT INFORMATION
  Report Type: 
  Country: None (occurrence: None)
  Receive Date: 20110809
  Receipt Date: 20110801
  Transmission Date: 20111222
  Serious: Yes (Hospitalization)
  Sender: FDA-Public Use
  Company Number: US-BIOGENIDEC-2010BI041111

PATIENT
  Age: 41 Year
  Sex: Female

DRUGS (2)
  1. TYSABRI [Suspect]
     Indication: MULTIPLE SCLEROSIS
     Route: 042
     Dates: start: 20090226, end: 20101001
  2. TYSABRI [Suspect]
     Route: 042
     Dates: start: 20110301

REACTIONS (11)
  - DEVICE RELATED INFECTION [None]
  - BIPOLAR DISORDER [None]
  - TRAUMATIC HAEMATOMA [None]
  - ARTHROPATHY [None]
  - NASOPHARYNGITIS [None]
  - FALL [None]
  - DIABETES MELLITUS [None]
  - DEPRESSED MOOD [None]
  - HEADACHE [None]
  - OBESITY [None]
  - MIGRAINE [None]
